FAERS Safety Report 23390309 (Version 4)
Quarter: 2024Q2

REPORT INFORMATION
  Report Type: Spontaneous
  Country: IT (occurrence: IT)
  Receive Date: 20240111
  Receipt Date: 20240410
  Transmission Date: 20240716
  Serious: Yes (Other)
  Sender: FDA-Public Use
  Company Number: IT-SUN PHARMACEUTICAL INDUSTRIES LTD-2023RR-426713

PATIENT
  Sex: Female

DRUGS (6)
  1. ODOMZO [Suspect]
     Active Substance: SONIDEGIB
     Indication: Basal cell carcinoma
     Dosage: 200 MILLIGRAM, DAILY
     Route: 065
     Dates: start: 20230501
  2. Laprovel 150 [Concomitant]
     Indication: Blood pressure management
     Dosage: UNK
     Route: 065
  3. Lobivol 5mg [Concomitant]
     Indication: Blood pressure management
     Dosage: UNK, TAKES THE HALF
     Route: 065
  4. ASPIRIN [Concomitant]
     Active Substance: ASPIRIN
     Indication: Product used for unknown indication
     Dosage: UNK
     Route: 065
  5. Peptazol 20 [Concomitant]
     Indication: Prophylaxis
     Dosage: UNK
     Route: 065
  6. Vasexten 10 mg [Concomitant]
     Indication: Blood pressure management
     Dosage: UNK
     Route: 065

REACTIONS (1)
  - Condition aggravated [Not Recovered/Not Resolved]

NARRATIVE: CASE EVENT DATE: 20231123
